FAERS Safety Report 10646561 (Version 3)
Quarter: 2015Q2

REPORT INFORMATION
  Report Type: Report from Study
  Country: JP (occurrence: JP)
  Receive Date: 20141211
  Receipt Date: 20150604
  Transmission Date: 20150821
  Serious: Yes (Other)
  Sender: FDA-Public Use
  Company Number: JP-JNJFOC-20141207272

PATIENT
  Age: 56 Year
  Sex: Male
  Weight: 83 kg

DRUGS (19)
  1. MAXACALCITOL [Concomitant]
     Active Substance: MAXACALCITOL
     Indication: PSORIASIS
     Route: 061
  2. AMLODIN [Concomitant]
     Active Substance: AMLODIPINE BESYLATE
     Route: 048
  3. STELARA [Suspect]
     Active Substance: USTEKINUMAB
     Indication: PSORIASIS
     Route: 058
     Dates: start: 20121010, end: 20121010
  4. TELMISARTAN. [Concomitant]
     Active Substance: TELMISARTAN
     Route: 048
  5. STELARA [Suspect]
     Active Substance: USTEKINUMAB
     Indication: PSORIASIS
     Route: 058
  6. STELARA [Suspect]
     Active Substance: USTEKINUMAB
     Indication: PSORIASIS
     Route: 058
     Dates: start: 20121226, end: 20121226
  7. BETAMETHASONE BUTYRATE [Concomitant]
     Indication: PSORIASIS
     Route: 061
  8. STELARA [Suspect]
     Active Substance: USTEKINUMAB
     Indication: PSORIASIS
     Route: 058
     Dates: start: 20130911, end: 20130911
  9. STELARA [Suspect]
     Active Substance: USTEKINUMAB
     Indication: PSORIASIS
     Route: 058
     Dates: start: 20120912, end: 20120912
  10. NOVORAPID [Concomitant]
     Active Substance: INSULIN ASPART
     Route: 065
  11. STELARA [Suspect]
     Active Substance: USTEKINUMAB
     Indication: PSORIASIS
     Route: 058
     Dates: start: 20130327, end: 20130327
  12. BETAMETHASONE BUTYRATE [Concomitant]
     Indication: PSORIASIS
     Route: 061
  13. STELARA [Suspect]
     Active Substance: USTEKINUMAB
     Indication: PSORIASIS
     Route: 058
     Dates: start: 20130619, end: 20130619
  14. LASIX [Concomitant]
     Active Substance: FUROSEMIDE
     Route: 065
  15. MAXACALCITOL [Concomitant]
     Active Substance: MAXACALCITOL
     Indication: PSORIASIS
     Route: 061
  16. MAXACALCITOL [Concomitant]
     Active Substance: MAXACALCITOL
     Indication: PSORIASIS
     Route: 061
  17. BETAMETHASONE BUTYRATE [Concomitant]
     Indication: PSORIASIS
     Route: 061
  18. FEBURIC [Concomitant]
     Active Substance: FEBUXOSTAT
     Route: 048
  19. CARDENALIN [Concomitant]
     Active Substance: DOXAZOSIN MESYLATE
     Route: 048

REACTIONS (1)
  - Clear cell renal cell carcinoma [Recovered/Resolved]

NARRATIVE: CASE EVENT DATE: 20140625
